FAERS Safety Report 8582163-X (Version None)
Quarter: 2012Q3

REPORT INFORMATION
  Report Type: 
  Country: None (occurrence: None)
  Receive Date: 20120809
  Receipt Date: 20120502
  Transmission Date: 20120928
  Serious: Yes (Other)
  Sender: FDA-Public Use
  Company Number: PHEH2012US015279

PATIENT
  Sex: Female

DRUGS (17)
  1. METFORMAS [Concomitant]
  2. TRIAMIN [Concomitant]
  3. WARFARIN SODIUM [Concomitant]
  4. FUROSEMIDE [Concomitant]
  5. DIOVAN [Suspect]
     Dosage: 80 MG, QD
  6. DIAZEPAM [Concomitant]
  7. STOOL SOFTENER [Concomitant]
  8. PREDNISONE TAB [Concomitant]
  9. ENBREL [Concomitant]
  10. RECLAST [Concomitant]
  11. VITAMIN B-12 [Concomitant]
  12. CLINDAMYCIN [Concomitant]
  13. TYLENOL ARTHRITIS [Concomitant]
  14. TOPROL-XL [Concomitant]
  15. ASPIRIN [Concomitant]
  16. ALLOPURINOL [Concomitant]
  17. ALIGHN [Concomitant]

REACTIONS (2)
  - RHEUMATOID ARTHRITIS [None]
  - DIABETES MELLITUS [None]
